FAERS Safety Report 14376547 (Version 1)
Quarter: 2018Q1

REPORT INFORMATION
  Report Type: Spontaneous
  Country: US (occurrence: US)
  Receive Date: 20180111
  Receipt Date: 20180111
  Transmission Date: 20180509
  Serious: No
  Sender: FDA-Public Use
  Company Number: US-DRREDDYS-USA/USA/17/0088486

PATIENT
  Age: 69 Year
  Sex: Female

DRUGS (1)
  1. NICOTINE. [Suspect]
     Active Substance: NICOTINE
     Indication: SMOKING CESSATION THERAPY
     Dosage: ABOUT 2 MONTHS AGO
     Route: 062

REACTIONS (3)
  - Incorrect drug administration duration [Unknown]
  - Treatment noncompliance [Unknown]
  - Incorrect dose administered [Unknown]
